FAERS Safety Report 9798928 (Version 2)
Quarter: 2014Q1

REPORT INFORMATION
  Report Type: Spontaneous
  Country: US (occurrence: US)
  Receive Date: 20140106
  Receipt Date: 20140106
  Transmission Date: 20141002
  Serious: No
  Sender: FDA-Public Use
  Company Number: US-GILEAD-2010-0033520

PATIENT
  Age: 52 Year
  Sex: Female

DRUGS (16)
  1. LETAIRIS [Suspect]
     Indication: PULMONARY ARTERIAL HYPERTENSION
     Route: 048
     Dates: start: 20100210
  2. CYCLOPHOSPHAMIDE [Suspect]
  3. REVATIO [Concomitant]
  4. FLOLAN [Concomitant]
  5. NORVASC [Concomitant]
  6. METOLAZONE [Concomitant]
  7. COUMADIN [Concomitant]
  8. LASIX [Concomitant]
  9. VENTOLIN [Concomitant]
  10. SYMBICORT [Concomitant]
  11. PREVACID [Concomitant]
  12. SYNTHROID [Concomitant]
  13. CELLCEPT [Concomitant]
  14. PLAQUENIL [Concomitant]
  15. IRON [Concomitant]
  16. POTASSIUM CHLORIDE [Concomitant]

REACTIONS (1)
  - White blood cell count decreased [Not Recovered/Not Resolved]
